FAERS Safety Report 17720500 (Version 1)
Quarter: 2020Q2

REPORT INFORMATION
  Report Type: Report from Study
  Country: US (occurrence: US)
  Receive Date: 20200428
  Receipt Date: 20200428
  Transmission Date: 20200714
  Serious: No
  Sender: FDA-Public Use
  Company Number: NVSC2017US007130

PATIENT
  Sex: Female

DRUGS (4)
  1. KETOROLAC [Suspect]
     Active Substance: KETOROLAC TROMETHAMINE
     Dosage: UNK
     Route: 065
  2. CROMOLYN SODIUM. [Suspect]
     Active Substance: CROMOLYN SODIUM
     Dosage: UNK
     Route: 065
  3. AZELASTINE. [Suspect]
     Active Substance: AZELASTINE HYDROCHLORIDE
     Dosage: UNK
     Route: 065
  4. ZADITOR [Suspect]
     Active Substance: KETOTIFEN FUMARATE
     Dosage: UNK
     Route: 065

REACTIONS (1)
  - Treatment failure [Unknown]
